FAERS Safety Report 10996739 (Version 1)
Quarter: 2015Q2

REPORT INFORMATION
  Report Type: Spontaneous
  Country: US (occurrence: US)
  Receive Date: 20150408
  Receipt Date: 20150408
  Transmission Date: 20150821
  Serious: No
  Sender: FDA-Public Use
  Company Number: US-BIOGENIDEC-2015BI041327

PATIENT
  Age: 63 Year
  Sex: Female

DRUGS (26)
  1. CRESTOR [Concomitant]
     Active Substance: ROSUVASTATIN CALCIUM
  2. PREDNISONE (PAK) [Concomitant]
  3. TRAMADOL [Concomitant]
     Active Substance: TRAMADOL
  4. NEXIUM [Concomitant]
     Active Substance: ESOMEPRAZOLE MAGNESIUM
  5. NITROGLYCERIN ER [Concomitant]
     Active Substance: NITROGLYCERIN
  6. POTASSIUM [Concomitant]
     Active Substance: POTASSIUM
  7. RELPAX [Concomitant]
     Active Substance: ELETRIPTAN HYDROBROMIDE
  8. TECFIDERA [Suspect]
     Active Substance: DIMETHYL FUMARATE
     Indication: MULTIPLE SCLEROSIS
     Route: 048
     Dates: start: 20130523
  9. ALBUTEROL SULFATE. [Concomitant]
     Active Substance: ALBUTEROL SULFATE
  10. CLOTRIMAZOLE. [Concomitant]
     Active Substance: CLOTRIMAZOLE
  11. PROZAC [Concomitant]
     Active Substance: FLUOXETINE HYDROCHLORIDE
  12. METOPROLOL TARTRATE. [Concomitant]
     Active Substance: METOPROLOL TARTRATE
  13. SINGULAIR [Concomitant]
     Active Substance: MONTELUKAST SODIUM
  14. SYBICORT [Concomitant]
  15. ASPIRIN EC [Concomitant]
     Active Substance: ASPIRIN
  16. IBUPROFEN. [Concomitant]
     Active Substance: IBUPROFEN
  17. NORVASC [Concomitant]
     Active Substance: AMLODIPINE BESYLATE
  18. TOPROL XL [Concomitant]
     Active Substance: METOPROLOL SUCCINATE
  19. VITAMIN D [Concomitant]
     Active Substance: CHOLECALCIFEROL
  20. XANAX [Concomitant]
     Active Substance: ALPRAZOLAM
  21. MIRAPEX [Concomitant]
     Active Substance: PRAMIPEXOLE DIHYDROCHLORIDE
  22. VENTOLIN HFA [Concomitant]
     Active Substance: ALBUTEROL SULFATE
  23. CAMBIA [Concomitant]
     Active Substance: DICLOFENAC POTASSIUM
  24. KLONOPIN [Concomitant]
     Active Substance: CLONAZEPAM
  25. OMEGA-3 FISH OIL EX ST [Concomitant]
  26. TOPAMAX [Concomitant]
     Active Substance: TOPIRAMATE

REACTIONS (1)
  - Band sensation [Not Recovered/Not Resolved]
